FAERS Safety Report 21445528 (Version 4)
Quarter: 2023Q1

REPORT INFORMATION
  Report Type: Report from Study
  Country: US (occurrence: US)
  Receive Date: 20221012
  Receipt Date: 20230207
  Transmission Date: 20230417
  Serious: Yes (Hospitalization)
  Sender: FDA-Public Use
  Company Number: US-ABBVIE-22K-163-4347830-00

PATIENT
  Sex: Female

DRUGS (4)
  1. IMBRUVICA [Suspect]
     Active Substance: IBRUTINIB
     Indication: Chronic lymphocytic leukaemia
     Route: 048
     Dates: start: 2019
  2. IMBRUVICA [Suspect]
     Active Substance: IBRUTINIB
     Indication: Chronic lymphocytic leukaemia
     Dosage: LAST ADMIN DATE: --2022?DOSE LOWERED
     Route: 048
     Dates: start: 20220101
  3. IMBRUVICA [Suspect]
     Active Substance: IBRUTINIB
     Indication: Chronic lymphocytic leukaemia
     Dosage: FIRST ADMIN DATE: --2022
     Route: 048
  4. PREDNISONE [Concomitant]
     Active Substance: PREDNISONE
     Indication: Product used for unknown indication
     Route: 065

REACTIONS (36)
  - Blister [Not Recovered/Not Resolved]
  - Blister [Not Recovered/Not Resolved]
  - Headache [Not Recovered/Not Resolved]
  - Balance disorder [Recovering/Resolving]
  - Thermal burn [Not Recovered/Not Resolved]
  - Pruritus [Not Recovered/Not Resolved]
  - Ear pain [Recovering/Resolving]
  - Contusion [Unknown]
  - Contusion [Not Recovered/Not Resolved]
  - Dysphonia [Unknown]
  - Swelling face [Unknown]
  - Hepatic enzyme decreased [Not Recovered/Not Resolved]
  - Eructation [Unknown]
  - Middle ear effusion [Not Recovered/Not Resolved]
  - Rash papular [Not Recovered/Not Resolved]
  - Haemorrhagic diathesis [Not Recovered/Not Resolved]
  - Nausea [Not Recovered/Not Resolved]
  - Sinus disorder [Not Recovered/Not Resolved]
  - Haemorrhage [Not Recovered/Not Resolved]
  - Burning sensation [Not Recovered/Not Resolved]
  - Constipation [Not Recovered/Not Resolved]
  - Ear discomfort [Not Recovered/Not Resolved]
  - Oral herpes [Recovering/Resolving]
  - Headache [Not Recovered/Not Resolved]
  - Weight decreased [Unknown]
  - Fatigue [Unknown]
  - Unevaluable event [Unknown]
  - White blood cell count decreased [Unknown]
  - Fungal infection [Not Recovered/Not Resolved]
  - Diarrhoea [Not Recovered/Not Resolved]
  - Skin atrophy [Not Recovered/Not Resolved]
  - Blister [Not Recovered/Not Resolved]
  - Increased tendency to bruise [Not Recovered/Not Resolved]
  - Sinusitis [Not Recovered/Not Resolved]
  - Wound secretion [Unknown]
  - Wound complication [Not Recovered/Not Resolved]

NARRATIVE: CASE EVENT DATE: 20210101
